FAERS Safety Report 15165625 (Version 1)
Quarter: 2018Q3

REPORT INFORMATION
  Report Type: Spontaneous
  Country: US (occurrence: US)
  Receive Date: 20180719
  Receipt Date: 20180719
  Transmission Date: 20181010
  Serious: No
  Sender: FDA-Public Use
  Company Number: US-PRINSTON PHARMACEUTICAL INC.-2018PRN00248

PATIENT
  Sex: Female

DRUGS (2)
  1. LISINOPRIL. [Suspect]
     Active Substance: LISINOPRIL
     Dosage: UNK
  2. ALEVE [Suspect]
     Active Substance: NAPROXEN SODIUM
     Dosage: 2 DOSAGE UNITS, 1X/DAY

REACTIONS (3)
  - Peripheral swelling [Not Recovered/Not Resolved]
  - Petechiae [Not Recovered/Not Resolved]
  - Hypersensitivity [Not Recovered/Not Resolved]
